FAERS Safety Report 6854107-X (Version None)
Quarter: 2010Q3

REPORT INFORMATION
  Report Type: 
  Country: None (occurrence: None)
  Receive Date: 20100717
  Receipt Date: 20071227
  Transmission Date: 20110219
  Serious: Yes (Other)
  Sender: FDA-Public Use
  Company Number: US-PFIZER INC-2008000207

PATIENT
  Age: 28 Year
  Sex: Female
  Weight: 79.4 kg

DRUGS (5)
  1. CHANTIX [Suspect]
     Indication: SMOKING CESSATION THERAPY
     Dates: start: 20071021, end: 20071219
  2. VALIUM [Concomitant]
     Indication: BACK PAIN
  3. VICODIN [Concomitant]
     Indication: BACK PAIN
  4. YASMIN [Concomitant]
     Indication: CONTRACEPTION
  5. PRILOSEC [Concomitant]

REACTIONS (5)
  - DEPRESSION [None]
  - DISTURBANCE IN ATTENTION [None]
  - SPEECH DISORDER [None]
  - SUICIDAL IDEATION [None]
  - WEIGHT INCREASED [None]
